FAERS Safety Report 6044028-7 (Version None)
Quarter: 2009Q1

REPORT INFORMATION
  Report Type: 
  Country: None (occurrence: None)
  Receive Date: 20090120
  Receipt Date: 20090109
  Transmission Date: 20090719
  Serious: Yes (Hospitalization)
  Sender: FDA-Public Use
  Company Number: SG-AVENTIS-200910472GDDC

PATIENT
  Age: 52 Year
  Sex: Female
  Weight: 47.1 kg

DRUGS (1)
  1. DOCETAXEL [Suspect]
     Indication: NON-SMALL CELL LUNG CANCER
     Dosage: DOSE: UNK
     Route: 042
     Dates: start: 20080904

REACTIONS (2)
  - HYPOACUSIS [None]
  - SUDDEN VISUAL LOSS [None]
